FAERS Safety Report 10150125 (Version 1)
Quarter: 2014Q2

REPORT INFORMATION
  Report Type: Spontaneous
  Country: FR (occurrence: FR)
  Receive Date: 20140502
  Receipt Date: 20140502
  Transmission Date: 20141212
  Serious: Yes (Other)
  Sender: FDA-Public Use
  Company Number: FR-TEVA-478037ISR

PATIENT
  Age: 79 Year
  Sex: Female

DRUGS (1)
  1. PACLITAXEL TEVA [Suspect]
     Dosage: 80 MG/M2 DAILY; 4 COURSES
     Route: 042
     Dates: start: 20120420, end: 20120521

REACTIONS (2)
  - Paraesthesia [Unknown]
  - Formication [Unknown]
